FAERS Safety Report 8193936-X (Version None)
Quarter: 2012Q1

REPORT INFORMATION
  Report Type: 
  Country: None (occurrence: None)
  Receive Date: 20120308
  Receipt Date: 20120227
  Transmission Date: 20120608
  Serious: Yes (Death)
  Sender: FDA-Public Use
  Company Number: FR-JNJFOC-20120214551

PATIENT
  Age: 53 Year
  Sex: Male

DRUGS (1)
  1. ACTIFED [Suspect]
     Indication: INFLUENZA
     Dosage: ONE TABLET AT NOON AND IN THE EVENING
     Route: 048
     Dates: start: 20101223, end: 20101223

REACTIONS (6)
  - AORTIC DISSECTION [None]
  - PALPITATIONS [None]
  - PAIN IN EXTREMITY [None]
  - DYSPNOEA [None]
  - ABDOMINAL PAIN [None]
  - ULCER [None]
